FAERS Safety Report 4516926-4 (Version None)
Quarter: 2004Q4

REPORT INFORMATION
  Report Type: 
  Country: None (occurrence: None)
  Receive Date: 20041130
  Receipt Date: 20041123
  Transmission Date: 20050328
  Serious: Yes (Death)
  Sender: FDA-Public Use
  Company Number: 200411013BVD

PATIENT
  Age: 40 Year
  Sex: Female

DRUGS (2)
  1. ASPIRIN [Suspect]
     Indication: COMPLETED SUICIDE
     Dosage: ORAL
     Route: 048
  2. ALCOHOL [Suspect]

REACTIONS (21)
  - AGITATION [None]
  - ALCOHOL POISONING [None]
  - ANALGESIC DRUG LEVEL ABOVE THERAPEUTIC [None]
  - BLOOD GLUCOSE INCREASED [None]
  - BLOOD PRESSURE SYSTOLIC INCREASED [None]
  - BLOOD SODIUM INCREASED [None]
  - BRADYCARDIA [None]
  - CARDIAC ARREST [None]
  - CARDIO-RESPIRATORY ARREST [None]
  - COMA [None]
  - COMPLETED SUICIDE [None]
  - CONFUSIONAL STATE [None]
  - DRUG TOXICITY [None]
  - HEART RATE INCREASED [None]
  - HYPERKALAEMIA [None]
  - HYPERVENTILATION [None]
  - METABOLIC ACIDOSIS [None]
  - METABOLIC ALKALOSIS [None]
  - OVERDOSE [None]
  - RESPIRATORY ALKALOSIS [None]
  - SOMNOLENCE [None]
